FAERS Safety Report 15012702 (Version 2)
Quarter: 2018Q4

REPORT INFORMATION
  Report Type: Spontaneous
  Country: US (occurrence: US)
  Receive Date: 20180614
  Receipt Date: 20181218
  Transmission Date: 20190204
  Serious: Yes (Hospitalization, Other)
  Sender: FDA-Public Use
  Company Number: US-OTSUKA-2018_015338

PATIENT
  Sex: Female

DRUGS (5)
  1. ABILIFY [Suspect]
     Active Substance: ARIPIPRAZOLE
     Indication: ANXIETY
     Dosage: 5 MG, QD
     Route: 065
  2. ABILIFY [Suspect]
     Active Substance: ARIPIPRAZOLE
     Indication: INSOMNIA
  3. ABILIFY [Suspect]
     Active Substance: ARIPIPRAZOLE
     Indication: MAJOR DEPRESSION
     Dosage: 10 MG, QD
     Route: 065
  4. ABILIFY [Suspect]
     Active Substance: ARIPIPRAZOLE
     Indication: PSYCHOTIC DISORDER
     Dosage: 20 MG, QD
     Route: 065
  5. ABILIFY [Suspect]
     Active Substance: ARIPIPRAZOLE
     Indication: POST-TRAUMATIC STRESS DISORDER

REACTIONS (15)
  - Obsessive-compulsive disorder [Not Recovered/Not Resolved]
  - Theft [Unknown]
  - Mental disorder [Unknown]
  - Compulsive sexual behaviour [Not Recovered/Not Resolved]
  - Shoplifting [Unknown]
  - Product use in unapproved indication [Unknown]
  - Suicidal ideation [Not Recovered/Not Resolved]
  - Sexually transmitted disease [Unknown]
  - Gambling disorder [Recovered/Resolved]
  - Economic problem [Unknown]
  - Divorced [Unknown]
  - Loss of employment [Unknown]
  - Suicide attempt [Not Recovered/Not Resolved]
  - Compulsive shopping [Not Recovered/Not Resolved]
  - Unintended pregnancy [Unknown]

NARRATIVE: CASE EVENT DATE: 201212
